FAERS Safety Report 9049627 (Version 2)
Quarter: 2013Q1

REPORT INFORMATION
  Report Type: Spontaneous
  Country: US (occurrence: US)
  Receive Date: 20130205
  Receipt Date: 20130328
  Transmission Date: 20140127
  Serious: Yes (Other)
  Sender: FDA-Public Use
  Company Number: US-PFIZER INC-2013040925

PATIENT
  Age: 67 Year
  Sex: Female
  Weight: 63.49 kg

DRUGS (17)
  1. PREMARIN [Suspect]
     Indication: VULVOVAGINAL BURNING SENSATION
     Dosage: 0.5 MG, UNK
     Route: 067
     Dates: start: 20130121, end: 20130123
  2. PREMARIN [Suspect]
     Indication: VULVOVAGINAL PRURITUS
     Dosage: 0.5 MG, UNK
     Route: 067
     Dates: start: 20130126
  3. PREMARIN [Suspect]
     Indication: VULVOVAGINAL DISCOMFORT
     Dosage: UNK
     Route: 067
  4. PREMARIN [Suspect]
     Indication: DYSURIA
  5. ESTRACE [Suspect]
     Indication: VULVOVAGINAL BURNING SENSATION
     Dosage: 0.1 MG, UNK
     Route: 067
     Dates: start: 20130125, end: 201301
  6. ESTRACE [Suspect]
     Indication: VULVOVAGINAL PRURITUS
  7. ESTRACE [Suspect]
     Indication: DYSURIA
  8. ESTRACE [Suspect]
     Indication: VULVOVAGINAL DISCOMFORT
  9. CALCITRIOL [Concomitant]
     Dosage: 0.5 UG, 1X/DAY
  10. CALCIUM WITH VITAMIN D [Concomitant]
     Dosage: 600/400 MG/IU TWO, 1X/DAY
  11. VITAMIN C [Concomitant]
     Dosage: 500 MG, 1X/DAY
  12. NYSTATIN [Concomitant]
     Dosage: 500 MG, 1X/DAY
  13. VITAMIN B12 [Concomitant]
     Dosage: 1000 UG, 1X/DAY
  14. CRANBERRY [Concomitant]
     Dosage: 900 MG, 1X/DAY
  15. CLONAZEPAM [Concomitant]
     Dosage: 7.5 MG, AS NEEDED
  16. ATENOLOL [Concomitant]
     Dosage: 25 MG, 1X/DAY
  17. TYLENOL [Concomitant]
     Dosage: UNK, 1X/DAY

REACTIONS (9)
  - Vaginal haemorrhage [Unknown]
  - Blood pressure abnormal [Recovered/Resolved]
  - Palpitations [Unknown]
  - Confusional state [Unknown]
  - Insomnia [Unknown]
  - Micturition urgency [Unknown]
  - Drug ineffective [Unknown]
  - Feeling abnormal [None]
  - Product packaging issue [None]
